FAERS Safety Report 26170006 (Version 1)
Quarter: 2025Q4

REPORT INFORMATION
  Report Type: Report from Study
  Country: US (occurrence: US)
  Receive Date: 20251217
  Receipt Date: 20251217
  Transmission Date: 20260118
  Serious: Yes (Other)
  Sender: NOVARTIS
  Company Number: US-002147023-NVSC2025US175844

PATIENT
  Age: 0 Year
  Sex: Female
  Weight: 8 kg

DRUGS (2)
  1. ZOLGENSMA [Suspect]
     Active Substance: ONASEMNOGENE ABEPARVOVEC-XIOI
     Indication: Spinal muscular atrophy
     Dosage: 8 ML, ONCE/SINGLE (8.3 ML VIAL X 5)
     Route: 042
     Dates: start: 20251027
  2. PREDNISOLONE [Concomitant]
     Active Substance: PREDNISOLONE
     Indication: Product used for unknown indication
     Dosage: UNK, QD (LIQUID)
     Route: 048

REACTIONS (5)
  - Hydrocephalus [Unknown]
  - Ventricular septal defect [Unknown]
  - Antibody test abnormal [Recovered/Resolved]
  - AST/ALT ratio increased [Recovered/Resolved]
  - Atrial septal defect [Unknown]

NARRATIVE: CASE EVENT DATE: 20251027
